FAERS Safety Report 19226423 (Version 1)
Quarter: 2021Q2

REPORT INFORMATION
  Report Type: Spontaneous
  Country: IT (occurrence: IT)
  Receive Date: 20210506
  Receipt Date: 20210506
  Transmission Date: 20210717
  Serious: Yes (Hospitalization)
  Sender: FDA-Public Use
  Company Number: IT-ABBVIE-21K-083-3891229-00

PATIENT
  Age: 78 Year
  Sex: Female
  Weight: 60 kg

DRUGS (1)
  1. MAVIRET [Suspect]
     Active Substance: GLECAPREVIR\PIBRENTASVIR
     Indication: HEPATITIS C
     Dosage: 100MG/40MG
     Route: 048
     Dates: start: 20210419, end: 20210502

REACTIONS (1)
  - Jaundice [Unknown]

NARRATIVE: CASE EVENT DATE: 20210501
